FAERS Safety Report 24182810 (Version 1)
Quarter: 2024Q3

REPORT INFORMATION
  Report Type: Spontaneous
  Country: TH (occurrence: TH)
  Receive Date: 20240807
  Receipt Date: 20240807
  Transmission Date: 20241016
  Serious: Yes (Death, Other)
  Sender: ASTELLAS
  Company Number: TH-ASTELLAS-2024US021907

PATIENT
  Weight: 50 kg

DRUGS (1)
  1. PADCEV [Suspect]
     Active Substance: ENFORTUMAB VEDOTIN-EJFV
     Indication: Transitional cell carcinoma metastatic
     Route: 042
     Dates: start: 20240205

REACTIONS (3)
  - Sepsis [Unknown]
  - Diarrhoea [Unknown]
  - Malignant neoplasm progression [Fatal]
